FAERS Safety Report 9411553 (Version 1)
Quarter: 2013Q3

REPORT INFORMATION
  Report Type: Spontaneous
  Country: US (occurrence: None)
  Receive Date: 20130718
  Receipt Date: 20130718
  Transmission Date: 20140515
  Serious: No
  Sender: FDA-Public Use
  Company Number: None

PATIENT
  Age: 53 Year
  Sex: Female
  Weight: 81.65 kg

DRUGS (1)
  1. ESTRACE [Suspect]
     Indication: MENOPAUSAL SYMPTOMS
     Route: 067
     Dates: start: 201212, end: 201306

REACTIONS (1)
  - Product packaging quantity issue [None]
